FAERS Safety Report 7587165-8 (Version None)
Quarter: 2011Q3

REPORT INFORMATION
  Report Type: 
  Country: None (occurrence: None)
  Receive Date: 20110701
  Receipt Date: 20110617
  Transmission Date: 20111222
  Serious: Yes (Other)
  Sender: FDA-Public Use
  Company Number: PL-WATSON-2011-09528

PATIENT
  Sex: Female

DRUGS (1)
  1. RANITIDINE HYDROCHLORIDE [Suspect]
     Indication: DRUG ABUSE
     Dosage: UNK

REACTIONS (5)
  - DRUG ABUSE [None]
  - DISORIENTATION [None]
  - SYNCOPE [None]
  - VERTIGO [None]
  - FEELING ABNORMAL [None]
